FAERS Safety Report 8498210-X (Version None)
Quarter: 2012Q3

REPORT INFORMATION
  Report Type: 
  Country: None (occurrence: None)
  Receive Date: 20120709
  Receipt Date: 20120621
  Transmission Date: 20120928
  Serious: No
  Sender: FDA-Public Use
  Company Number: US-AMGEN-USASP2012038607

PATIENT
  Age: 61 Year
  Sex: Female

DRUGS (2)
  1. TREXALL [Concomitant]
     Dosage: 1 MG, UNK
     Dates: start: 20080101
  2. ENBREL [Suspect]
     Indication: RHEUMATOID ARTHRITIS
     Dosage: 50 MG, QWK
     Dates: start: 20081001

REACTIONS (8)
  - EAR DISCOMFORT [None]
  - SINUSITIS [None]
  - INJECTION SITE HAEMATOMA [None]
  - CONTUSION [None]
  - LYMPHADENOPATHY [None]
  - INJECTION SITE HAEMORRHAGE [None]
  - NECK PAIN [None]
  - MUSCULOSKELETAL STIFFNESS [None]
